FAERS Safety Report 6047720-3 (Version None)
Quarter: 2009Q1

REPORT INFORMATION
  Report Type: 
  Country: None (occurrence: None)
  Receive Date: 20090123
  Receipt Date: 20090115
  Transmission Date: 20090719
  Serious: Yes (Hospitalization, Other)
  Sender: FDA-Public Use
  Company Number: FR-JNJFOC-20090102931

PATIENT
  Sex: Male

DRUGS (4)
  1. RISPERDAL CONSTA [Suspect]
     Indication: DRUG USE FOR UNKNOWN INDICATION
     Route: 030
  2. NEUROLEPTICS [Suspect]
     Indication: DRUG USE FOR UNKNOWN INDICATION
     Route: 065
  3. DEPAKOTE [Concomitant]
  4. STILNOX [Concomitant]

REACTIONS (7)
  - COCCYDYNIA [None]
  - EXTRAPYRAMIDAL DISORDER [None]
  - FALL [None]
  - HAEMATOMA [None]
  - HYPERTONIA [None]
  - INFLAMMATION [None]
  - RHABDOMYOLYSIS [None]
